FAERS Safety Report 16423937 (Version 1)
Quarter: 2019Q2

REPORT INFORMATION
  Report Type: Other
  Country: ES (occurrence: ES)
  Receive Date: 20190613
  Receipt Date: 20190613
  Transmission Date: 20190711
  Serious: Yes (Hospitalization, Other)
  Sender: FDA-Public Use
  Company Number: ES-APOTEX-2019AP016518

PATIENT
  Age: 35 Year
  Sex: Female

DRUGS (5)
  1. TRAMADOL. [Suspect]
     Active Substance: TRAMADOL
     Indication: PRODUCT USED FOR UNKNOWN INDICATION
     Dosage: 50 MG, TID (EVERY 8 HOURS)
     Route: 048
     Dates: start: 20181217, end: 20181224
  2. METAMIZOL                          /06276701/ [Suspect]
     Active Substance: METAMIZOLE
     Dosage: 575 MG, TID (EVERY 8 HOURS)
     Route: 048
     Dates: start: 20181217, end: 20181224
  3. METAMIZOL                          /06276701/ [Suspect]
     Active Substance: METAMIZOLE
     Indication: PRODUCT USED FOR UNKNOWN INDICATION
     Dosage: 2 G, TID (EVERY 8 HOURS)
     Route: 042
  4. ACETAMINOPHEN. [Suspect]
     Active Substance: ACETAMINOPHEN
     Indication: PRODUCT USED FOR UNKNOWN INDICATION
     Dosage: UNK, TID (EVERY 8 HOURS)
     Route: 048
     Dates: start: 20181217, end: 20181224
  5. DEXKETOPROFENO [Suspect]
     Active Substance: DEXKETOPROFEN
     Indication: PRODUCT USED FOR UNKNOWN INDICATION
     Dosage: 25 MG, TID (EVERY 8 HOURS)
     Route: 048
     Dates: start: 20181217, end: 20181224

REACTIONS (1)
  - Hepatitis acute [Recovered/Resolved]

NARRATIVE: CASE EVENT DATE: 20181224
